FAERS Safety Report 9800945 (Version 2)
Quarter: 2014Q1

REPORT INFORMATION
  Report Type: Spontaneous
  Country: GB (occurrence: GB)
  Receive Date: 20140107
  Receipt Date: 20140107
  Transmission Date: 20141002
  Serious: Yes (Other)
  Sender: FDA-Public Use
  Company Number: GB-GE HEALTHCARE MEDICAL DIAGNOSTICS-OSCN-PR-0710S-0425

PATIENT
  Age: 50 Year
  Sex: Female
  Weight: 87.5 kg

DRUGS (9)
  1. OMNISCAN [Suspect]
     Indication: PAIN IN EXTREMITY
     Route: 042
     Dates: start: 20060905, end: 20060905
  2. NEORCOMON [Concomitant]
  3. NITRAZEPAM [Concomitant]
  4. FOLIC ACID [Concomitant]
  5. ASPIRIN [Concomitant]
  6. OROVITE [Concomitant]
  7. SENNA [Concomitant]
  8. ZOTON [Concomitant]
  9. CALCIUM ACETATE [Concomitant]

REACTIONS (1)
  - Nephrogenic systemic fibrosis [Not Recovered/Not Resolved]
